FAERS Safety Report 18358733 (Version 1)
Quarter: 2020Q4

REPORT INFORMATION
  Report Type: Spontaneous
  Country: US (occurrence: US)
  Receive Date: 20201008
  Receipt Date: 20201008
  Transmission Date: 20210114
  Serious: No
  Sender: FDA-Public Use
  Company Number: US-BEH-2020122964

PATIENT
  Age: 36 Year
  Sex: Male

DRUGS (1)
  1. HIZENTRA [Suspect]
     Active Substance: HUMAN IMMUNOGLOBULIN G
     Dosage: 10 MILLIGRAM, QW
     Route: 058
     Dates: start: 202007

REACTIONS (5)
  - Rash pruritic [Unknown]
  - Abdominal pain upper [Unknown]
  - Rash erythematous [Unknown]
  - Dry skin [Unknown]
  - Back pain [Unknown]

NARRATIVE: CASE EVENT DATE: 202007
